FAERS Safety Report 5590686-0 (Version None)
Quarter: 2008Q1

REPORT INFORMATION
  Report Type: 
  Country: None (occurrence: None)
  Receive Date: 20080110
  Receipt Date: 20080107
  Transmission Date: 20080703
  Serious: Yes (Other)
  Sender: FDA-Public Use
  Company Number: A0701896A

PATIENT
  Age: 58 Year
  Sex: Female

DRUGS (1)
  1. ASPIRIN + CAFFEINE + SALICYLAMIDE POWDER (ASPIRIN+CARFFEINE+SALICYLA) [Suspect]
     Indication: DRUG USE FOR UNKNOWN INDICATION
     Dosage: SEE DOSAGE TEXT / ORAL
     Route: 048

REACTIONS (1)
  - HALLUCINATION [None]
